FAERS Safety Report 21861885 (Version 8)
Quarter: 2023Q2

REPORT INFORMATION
  Report Type: Spontaneous
  Country: PT (occurrence: PT)
  Receive Date: 20230113
  Receipt Date: 20230605
  Transmission Date: 20230722
  Serious: Yes (Other)
  Sender: FDA-Public Use
  Company Number: None

PATIENT
  Age: 59 Year
  Sex: Male
  Weight: 73 kg

DRUGS (10)
  1. VELTASSA [Suspect]
     Active Substance: PATIROMER
     Indication: Hyperkalaemia
     Dosage: 1 SACHET (1 DOSAGE FORM) PER DAY WITH A SNACK
     Route: 048
     Dates: start: 20221205, end: 20221214
  2. VELTASSA [Suspect]
     Active Substance: PATIROMER
     Dosage: 2 SACHETS (2 DOSAGE FORM) PER DAY WITH A SNACK
     Route: 048
     Dates: start: 20221214, end: 20230418
  3. VELTASSA [Suspect]
     Active Substance: PATIROMER
     Route: 048
     Dates: start: 20230419
  4. BISOPROLOL [Concomitant]
     Active Substance: BISOPROLOL
     Dosage: AT BREAKFAST
  5. SERENAL [OXAZEPAM] [Concomitant]
     Dosage: 1 TABLET AS NEEDED
  6. XARELTO [Concomitant]
     Active Substance: RIVAROXABAN
  7. SACUBITRIL\VALSARTAN [Concomitant]
     Active Substance: SACUBITRIL\VALSARTAN
     Dosage: 24 MG + 26 MG, AT BREAKFAST AND DINNER
  8. DAPAGLIFLOZIN [Concomitant]
     Active Substance: DAPAGLIFLOZIN
     Dosage: 1 TABLET AT LUNCH
  9. BICARBONATO [Concomitant]
     Dosage: 1 TABLET PER DAY
     Route: 048
  10. SPIRONOLACTONE [Concomitant]
     Active Substance: SPIRONOLACTONE
     Dosage: HALF A TABLET AT LUNCH
     Route: 048

REACTIONS (4)
  - Metabolic acidosis [Recovering/Resolving]
  - Diarrhoea [Recovered/Resolved]
  - Abdominal pain [Recovered/Resolved]
  - Hypomagnesaemia [Recovered/Resolved]

NARRATIVE: CASE EVENT DATE: 20221206
